FAERS Safety Report 6914067-X (Version None)
Quarter: 2010Q3

REPORT INFORMATION
  Report Type: 
  Country: None (occurrence: None)
  Receive Date: 20100809
  Receipt Date: 20100804
  Transmission Date: 20110219
  Serious: Yes (Life-Threatening, Hospitalization)
  Sender: FDA-Public Use
  Company Number: PHBS2006JP16023

PATIENT
  Age: 55 Year
  Sex: Male

DRUGS (4)
  1. SANDIMMUNE [Suspect]
     Indication: COLITIS ULCERATIVE
     Dosage: UNK
     Dates: start: 20041201
  2. PREDNISOLONE [Suspect]
     Indication: COLITIS ULCERATIVE
     Dosage: 60 MG DAILY
     Route: 042
     Dates: start: 20040901
  3. METHYLPREDNISOLONE [Suspect]
     Indication: COLITIS ULCERATIVE
  4. TPN [Concomitant]
     Dates: start: 20040901

REACTIONS (10)
  - BLOOD ALBUMIN DECREASED [None]
  - COLECTOMY TOTAL [None]
  - COLITIS ULCERATIVE [None]
  - COLOSTOMY [None]
  - DYSPNOEA [None]
  - ILEOSTOMY [None]
  - MALNUTRITION [None]
  - MECHANICAL VENTILATION [None]
  - MEGACOLON [None]
  - PNEUMOCYSTIS JIROVECI PNEUMONIA [None]
